FAERS Safety Report 6614152-6 (Version None)
Quarter: 2010Q1

REPORT INFORMATION
  Report Type: 
  Country: None (occurrence: None)
  Receive Date: 20100304
  Receipt Date: 20100224
  Transmission Date: 20100710
  Serious: Yes (Death)
  Sender: FDA-Public Use
  Company Number: GXKR2010SG02292

PATIENT
  Age: 4 Year
  Sex: Female

DRUGS (1)
  1. PENICILLIN V POTASSIUM (NGX) [Suspect]
     Indication: ANTIBIOTIC THERAPY
     Route: 048

REACTIONS (4)
  - MULTI-ORGAN FAILURE [None]
  - NEUTROPENIC SEPSIS [None]
  - PERITONITIS [None]
  - TOXIC EPIDERMAL NECROLYSIS [None]
